FAERS Safety Report 17015564 (Version 2)
Quarter: 2022Q3

REPORT INFORMATION
  Report Type: Spontaneous
  Country: CA (occurrence: CA)
  Receive Date: 20191111
  Receipt Date: 20220706
  Transmission Date: 20221027
  Serious: Yes (Hospitalization, Other)
  Sender: FDA-Public Use
  Company Number: CA-PFIZER INC-2019481541

PATIENT
  Age: 46 Year
  Sex: Female
  Weight: 73 kg

DRUGS (19)
  1. FLUOROURACIL [Suspect]
     Active Substance: FLUOROURACIL
     Dosage: UNK
     Route: 065
  2. FLUOROURACIL [Suspect]
     Active Substance: FLUOROURACIL
     Dosage: UNK
     Route: 065
  3. IRINOTECAN HYDROCHLORIDE [Suspect]
     Active Substance: IRINOTECAN HYDROCHLORIDE
     Route: 065
  4. IRINOTECAN HYDROCHLORIDE [Suspect]
     Active Substance: IRINOTECAN HYDROCHLORIDE
     Dosage: UNK
     Route: 042
  5. DEXAMETHASONE [Suspect]
     Active Substance: DEXAMETHASONE
     Indication: Prophylaxis of nausea and vomiting
     Dosage: UNK, CYCLIC
     Route: 065
  6. DEXAMETHASONE [Suspect]
     Active Substance: DEXAMETHASONE
     Dosage: 10.0 MG, CYCLIC
     Route: 042
  7. DEXAMETHASONE [Suspect]
     Active Substance: DEXAMETHASONE
     Dosage: 8.0 MG, 1X/DAY
     Route: 048
  8. AVASTIN [Suspect]
     Active Substance: BEVACIZUMAB
     Indication: Colorectal cancer metastatic
     Dosage: UNK
     Route: 065
  9. ELOXATIN [Suspect]
     Active Substance: OXALIPLATIN
     Indication: Colon cancer
     Dosage: 155.0 MG, CYCLIC
     Route: 042
  10. ELOXATIN [Suspect]
     Active Substance: OXALIPLATIN
     Dosage: 155.0 MG, CYCLIC
     Route: 042
  11. ELOXATIN [Suspect]
     Active Substance: OXALIPLATIN
     Dosage: UNK
     Route: 065
  12. ELOXATIN [Suspect]
     Active Substance: OXALIPLATIN
     Dosage: 155 MG
     Route: 042
  13. LEUCOVORIN [Suspect]
     Active Substance: LEUCOVORIN
     Dosage: UNK
     Route: 065
  14. LEUCOVORIN [Suspect]
     Active Substance: LEUCOVORIN
     Dosage: 730.0 MG, UNK
     Route: 042
  15. LEUCOVORIN [Suspect]
     Active Substance: LEUCOVORIN
     Dosage: UNK
     Route: 065
  16. APREPITANT [Suspect]
     Active Substance: APREPITANT
     Dosage: 80.0 MG, UNK
     Route: 048
  17. FLUOROURACIL [Concomitant]
     Active Substance: FLUOROURACIL
     Dosage: UNK
     Route: 042
  18. GRANISETRON [Concomitant]
     Active Substance: GRANISETRON
     Dosage: 1.0 MG, UNK
     Route: 042
  19. PROCHLORAZINE [Concomitant]
     Dosage: 10.0 MG, UNK
     Route: 065

REACTIONS (4)
  - Diabetic ketoacidosis [Unknown]
  - Pancreatitis acute [Unknown]
  - Toxicity to various agents [Unknown]
  - Neoplasm progression [Unknown]
